FAERS Safety Report 7270486-6 (Version None)
Quarter: 2011Q1

REPORT INFORMATION
  Report Type: 
  Country: None (occurrence: None)
  Receive Date: 20110202
  Receipt Date: 20110125
  Transmission Date: 20110831
  Serious: Yes (Other)
  Sender: FDA-Public Use
  Company Number: US-ELI_LILLY_AND_COMPANY-US201101007628

PATIENT
  Age: 32 Year
  Sex: Female

DRUGS (5)
  1. MAGNESIUM [Concomitant]
  2. ASPIRIN [Concomitant]
     Dosage: 325 D/F, UNKNOWN
  3. EFFIENT [Suspect]
     Dosage: 5 MG, UNKNOWN
  4. VITAMIN B12 + FOLIC ACID [Concomitant]
  5. MULTI-VITAMIN [Concomitant]

REACTIONS (1)
  - ASPARTATE AMINOTRANSFERASE INCREASED [None]
